FAERS Safety Report 18339788 (Version 3)
Quarter: 2022Q2

REPORT INFORMATION
  Report Type: Spontaneous
  Country: US (occurrence: None)
  Receive Date: 20201002
  Receipt Date: 20220602
  Transmission Date: 20220721
  Serious: Yes (Hospitalization, Other)
  Sender: FDA-Public Use
  Company Number: 2020SF25347

PATIENT
  Age: 20882 Day
  Sex: Male
  Weight: 174.2 kg

DRUGS (48)
  1. FARXIGA [Suspect]
     Active Substance: DAPAGLIFLOZIN PROPANEDIOL
     Indication: Type 2 diabetes mellitus
     Route: 048
     Dates: start: 201804, end: 201903
  2. FARXIGA [Suspect]
     Active Substance: DAPAGLIFLOZIN PROPANEDIOL
     Indication: Weight decreased
     Route: 048
     Dates: start: 201804, end: 201903
  3. FARXIGA [Suspect]
     Active Substance: DAPAGLIFLOZIN PROPANEDIOL
     Indication: Blood pressure decreased
     Route: 048
     Dates: start: 201804, end: 201903
  4. ACETAMINOPHEN\HYDROCODONE [Concomitant]
     Active Substance: ACETAMINOPHEN\HYDROCODONE
  5. PENICILLIN V POTASSIUM [Concomitant]
     Active Substance: PENICILLIN V POTASSIUM
  6. VIGAMOX [Concomitant]
     Active Substance: MOXIFLOXACIN HYDROCHLORIDE
  7. DUREZOL [Concomitant]
     Active Substance: DIFLUPREDNATE
  8. ACETAMINOPHEN [Concomitant]
     Active Substance: ACETAMINOPHEN
  9. ALBUTEROL SULFATE [Concomitant]
     Active Substance: ALBUTEROL SULFATE
  10. FERROUS SULFATE [Concomitant]
     Active Substance: FERROUS SULFATE
  11. GLIPIZIDE [Concomitant]
     Active Substance: GLIPIZIDE
  12. HEPARIN [Concomitant]
     Active Substance: HEPARIN SODIUM
  13. MELATONIN [Concomitant]
     Active Substance: MELATONIN
  14. METOPROLOL TARTRATE [Concomitant]
     Active Substance: METOPROLOL TARTRATE
  15. QUETIAPINE FUMARATE [Concomitant]
     Active Substance: QUETIAPINE FUMARATE
  16. PANTOPRAZOLE SODIUM [Concomitant]
     Active Substance: PANTOPRAZOLE SODIUM
  17. ZOSYN [Concomitant]
     Active Substance: PIPERACILLIN SODIUM\TAZOBACTAM SODIUM
  18. OXYCODONE [Concomitant]
     Active Substance: OXYCODONE
  19. FUROSEMIDE [Concomitant]
     Active Substance: FUROSEMIDE
  20. DEXTROSE [Concomitant]
     Active Substance: DEXTROSE
  21. NITROGLYCERIN [Concomitant]
     Active Substance: NITROGLYCERIN
  22. METHYLPREDNISOLONE [Concomitant]
     Active Substance: METHYLPREDNISOLONE
  23. SODIUM CHLORIDE [Concomitant]
     Active Substance: SODIUM CHLORIDE
  24. HEPARIN SODIUM [Concomitant]
     Active Substance: HEPARIN SODIUM
  25. AZITHROMYCIN [Concomitant]
     Active Substance: AZITHROMYCIN
  26. NOVOLOG [Concomitant]
     Active Substance: INSULIN ASPART
  27. LANTUS [Concomitant]
     Active Substance: INSULIN GLARGINE
  28. MAGNESIUM OXIDE [Concomitant]
     Active Substance: MAGNESIUM OXIDE
  29. POTASSIUM CHLORIDE [Concomitant]
     Active Substance: POTASSIUM CHLORIDE
  30. LISINOPRIL [Concomitant]
     Active Substance: LISINOPRIL
  31. LACTULOSE [Concomitant]
     Active Substance: LACTULOSE
  32. VANCOMYCIN HYDROCHLORIDE [Concomitant]
     Active Substance: VANCOMYCIN HYDROCHLORIDE
  33. CEFEPIME [Concomitant]
     Active Substance: CEFEPIME HYDROCHLORIDE
  34. SUBLIMAZE [Concomitant]
     Active Substance: FENTANYL CITRATE
  35. FAMOTIDINE [Concomitant]
     Active Substance: FAMOTIDINE
  36. BACITRACIN [Concomitant]
     Active Substance: BACITRACIN
  37. HYDROMORPHONE [Concomitant]
     Active Substance: HYDROMORPHONE
  38. CLINDAMYCIN HYDROCHLORIDE [Concomitant]
     Active Substance: CLINDAMYCIN HYDROCHLORIDE
  39. PROPOFOL [Concomitant]
     Active Substance: PROPOFOL
  40. METFORMIN HYDROCHLORIDE [Concomitant]
     Active Substance: METFORMIN HYDROCHLORIDE
  41. SIMVASTATIN [Concomitant]
     Active Substance: SIMVASTATIN
  42. ZOLPIDEM [Concomitant]
     Active Substance: ZOLPIDEM TARTRATE
  43. SPIRONOLACTONE [Concomitant]
     Active Substance: SPIRONOLACTONE
  44. CEFUROXIME [Concomitant]
     Active Substance: CEFUROXIME
  45. MEPROPENEM [Concomitant]
  46. GENTAMICIN [Concomitant]
     Active Substance: GENTAMICIN
  47. AMPICILLIN [Concomitant]
     Active Substance: AMPICILLIN
  48. ERTAPENEM [Concomitant]
     Active Substance: ERTAPENEM

REACTIONS (12)
  - Fournier^s gangrene [Unknown]
  - Necrotising fasciitis [Unknown]
  - Sepsis [Unknown]
  - Septic shock [Unknown]
  - Streptococcal sepsis [Unknown]
  - Cellulitis [Unknown]
  - Abscess limb [Unknown]
  - Scrotal swelling [Unknown]
  - Pain [Unknown]
  - Scar [Unknown]
  - Anal incontinence [Unknown]
  - Nerve injury [Unknown]

NARRATIVE: CASE EVENT DATE: 20190209
